FAERS Safety Report 25236064 (Version 1)
Quarter: 2025Q2

REPORT INFORMATION
  Report Type: Spontaneous
  Country: FR (occurrence: FR)
  Receive Date: 20250424
  Receipt Date: 20250424
  Transmission Date: 20250717
  Serious: Yes (Congenital Anomaly)
  Sender: TEVA
  Company Number: None

PATIENT
  Age: 0 Day
  Sex: Female
  Weight: 2.35 kg

DRUGS (3)
  1. BISOPROLOL [Suspect]
     Active Substance: BISOPROLOL
     Indication: Marfan^s syndrome
     Route: 064
     Dates: start: 20240530, end: 20250131
  2. KARDEGIC [Suspect]
     Active Substance: ASPIRIN DL-LYSINE
     Indication: Cerebrovascular accident
     Route: 064
     Dates: start: 20240530, end: 20250131
  3. LOVENOX [Suspect]
     Active Substance: ENOXAPARIN SODIUM
     Indication: Cerebrovascular accident
     Route: 064
     Dates: start: 202406, end: 20250131

REACTIONS (3)
  - Hypoglycaemia neonatal [Recovered/Resolved]
  - Maternal exposure during pregnancy [Recovered/Resolved]
  - Neonatal respiratory distress [Recovered/Resolved]

NARRATIVE: CASE EVENT DATE: 20250131
